FAERS Safety Report 6693316-X (Version None)
Quarter: 2010Q2

REPORT INFORMATION
  Report Type: 
  Country: None (occurrence: None)
  Receive Date: 20100421
  Receipt Date: 20100421
  Transmission Date: 20101027
  Serious: No
  Sender: FDA-Public Use
  Company Number: None

PATIENT
  Age: 46 Year
  Sex: Male
  Weight: 97.5234 kg

DRUGS (2)
  1. PROVIGIL [Suspect]
     Indication: SLEEP APNOEA SYNDROME
     Dosage: 300 MG TWICE PER DAY PO
     Route: 048
     Dates: start: 20100301, end: 20100419
  2. PROVIGIL [Suspect]
     Indication: SOMNOLENCE
     Dosage: 300 MG TWICE PER DAY PO
     Route: 048
     Dates: start: 20100301, end: 20100419

REACTIONS (2)
  - DRUG INEFFECTIVE [None]
  - PRODUCT MEASURED POTENCY ISSUE [None]
